FAERS Safety Report 8125729-3 (Version None)
Quarter: 2012Q1

REPORT INFORMATION
  Report Type: 
  Country: None (occurrence: None)
  Receive Date: 20120209
  Receipt Date: 20120128
  Transmission Date: 20120608
  Serious: Yes (Other)
  Sender: FDA-Public Use
  Company Number: CHPA2012US002141

PATIENT
  Age: 54 Year
  Sex: Male

DRUGS (1)
  1. EXCEDRIN MIGRAINE CAPLETS [Suspect]
     Indication: HEADACHE
     Dosage: 9-15 DF, UNK
     Route: 048

REACTIONS (4)
  - BURNING SENSATION [None]
  - OVERDOSE [None]
  - DRUG DEPENDENCE [None]
  - ABDOMINAL PAIN UPPER [None]
